FAERS Safety Report 5349588-7 (Version None)
Quarter: 2007Q2

REPORT INFORMATION
  Report Type: 
  Country: None (occurrence: None)
  Receive Date: 20070607
  Receipt Date: 20070529
  Transmission Date: 20071010
  Serious: Yes (Hospitalization)
  Sender: FDA-Public Use
  Company Number: FR-ELI_LILLY_AND_COMPANY-FR200704002507

PATIENT
  Age: 85 Year
  Sex: Female

DRUGS (12)
  1. TICLID [Concomitant]
     Indication: CAROTID ARTERY STENOSIS
     Dosage: 250 MG, UNKNOWN
     Route: 048
  2. STABLON [Concomitant]
  3. OMEPRAZOLE [Concomitant]
  4. OROCAL D(3) [Concomitant]
  5. FORTEO [Suspect]
     Indication: OSTEOPOROSIS
     Dosage: 20 UG, DAILY (1/D)
     Route: 058
     Dates: start: 20060509
  6. CARDENSIEL [Concomitant]
     Dosage: 1 D/F, DAILY (1/D)
     Route: 048
  7. PREVISCAN [Concomitant]
     Dosage: UNK, DAILY (1/D)
     Route: 048
  8. LASIX [Concomitant]
     Dosage: 20 MG, DAILY (1/D)
     Route: 048
  9. TRIATEC [Concomitant]
     Dosage: 10 MG, DAILY (1/D)
     Route: 048
  10. ZOCOR [Concomitant]
     Dosage: 1 D/F, DAILY (1/D)
     Route: 048
  11. HEMIGOXINE NATIVELLE [Concomitant]
     Dosage: 1 D/F, DAILY (1/D)
     Route: 048
  12. CALCIDOSE VITAMINE D [Concomitant]
     Dosage: UNK, 3/D
     Route: 048

REACTIONS (3)
  - BRONCHITIS [None]
  - CARDIAC FAILURE [None]
  - TACHYARRHYTHMIA [None]
